FAERS Safety Report 4868715-9 (Version None)
Quarter: 2005Q4

REPORT INFORMATION
  Report Type: 
  Country: None (occurrence: None)
  Receive Date: 20051223
  Receipt Date: 20051215
  Transmission Date: 20060501
  Serious: Yes (Death, Congenital Anomaly, Other)
  Sender: FDA-Public Use
  Company Number: 2005170056

PATIENT

DRUGS (2)
  1. SULFASALAZINE [Suspect]
     Indication: ANKYLOSING SPONDYLITIS
     Dosage: 2 GRAM (500 MG, 4 IN 1 D), ORAL
     Route: 048
     Dates: end: 20050427
  2. LEVOTHYROXINE SODIUM [Suspect]
     Indication: ILL-DEFINED DISORDER
     Dosage: 175 MCG (DAILY), ORAL
     Route: 048

REACTIONS (4)
  - ABORTION INDUCED [None]
  - ANENCEPHALY [None]
  - DRUG EXPOSURE BEFORE PREGNANCY [None]
  - URINARY TRACT MALFORMATION [None]
